FAERS Safety Report 7949561-6 (Version None)
Quarter: 2011Q4

REPORT INFORMATION
  Report Type: 
  Country: None (occurrence: None)
  Receive Date: 20111130
  Receipt Date: 20111123
  Transmission Date: 20120403
  Serious: Yes (Other)
  Sender: FDA-Public Use
  Company Number: CN-ABBOTT-11P-035-0878504-00

PATIENT
  Age: 38 Year
  Sex: Male

DRUGS (2)
  1. VALPROIC ACID [Suspect]
     Indication: EPILEPSY
     Route: 048
     Dates: start: 20101001, end: 20111001
  2. CARBAMAZEPINE [Concomitant]
     Indication: PRODUCT USED FOR UNKNOWN INDICATION
     Dates: start: 20100715

REACTIONS (3)
  - BRAIN NEOPLASM [None]
  - URINARY INCONTINENCE [None]
  - MICTURITION URGENCY [None]
